FAERS Safety Report 19440792 (Version 1)
Quarter: 2021Q2

REPORT INFORMATION
  Report Type: Spontaneous
  Country: US (occurrence: US)
  Receive Date: 20210621
  Receipt Date: 20210621
  Transmission Date: 20210717
  Serious: No
  Sender: FDA-Public Use
  Company Number: US-GLENMARK PHARMACEUTICALS-2021GMK052794

PATIENT

DRUGS (1)
  1. PIMECROLIMUS CREAM, 1% [Suspect]
     Active Substance: PIMECROLIMUS
     Indication: VITILIGO
     Dosage: UNK, BID
     Route: 061
     Dates: start: 202011

REACTIONS (5)
  - Therapeutic product effect incomplete [Unknown]
  - Product use in unapproved indication [Unknown]
  - Product leakage [Unknown]
  - Product administration error [Unknown]
  - Product primary packaging issue [Unknown]

NARRATIVE: CASE EVENT DATE: 202011
